FAERS Safety Report 7766889-3 (Version None)
Quarter: 2011Q3

REPORT INFORMATION
  Report Type: 
  Country: None (occurrence: None)
  Receive Date: 20110922
  Receipt Date: 20110920
  Transmission Date: 20111222
  Serious: No
  Sender: FDA-Public Use
  Company Number: US-PFIZER INC-2011223819

PATIENT
  Sex: Male
  Weight: 109 kg

DRUGS (3)
  1. TRANXENE [Concomitant]
     Indication: NEUROPATHY PERIPHERAL
     Dosage: 7.5 MG, AS NEEDED
     Route: 048
  2. PROTONIX [Suspect]
     Indication: GASTROOESOPHAGEAL REFLUX DISEASE
     Dosage: 40 MG, DAILY
     Route: 048
     Dates: start: 20080101, end: 20110912
  3. ACETYLSALICYLIC ACID [Concomitant]
     Dosage: 81 MG, AS NEEDED

REACTIONS (1)
  - MALAISE [None]
